FAERS Safety Report 13003878 (Version 1)
Quarter: 2016Q4

REPORT INFORMATION
  Report Type: Spontaneous
  Country: CA (occurrence: CA)
  Receive Date: 20161206
  Receipt Date: 20161206
  Transmission Date: 20170207
  Serious: Yes (Hospitalization)
  Sender: FDA-Public Use
  Company Number: CA-009507513-1612CAN001784

PATIENT
  Age: 14 Year
  Sex: Male
  Weight: 72.5 kg

DRUGS (2)
  1. RAGWITEK [Suspect]
     Active Substance: AMBROSIA ARTEMISIIFOLIA POLLEN
     Indication: RHINITIS ALLERGIC
     Dosage: 12 DF, 1 EVERY 1 DAY(S)
     Route: 060
  2. GRASTEK [Concomitant]
     Active Substance: PHLEUM PRATENSE POLLEN
     Route: 048

REACTIONS (2)
  - Speech disorder [Recovered/Resolved]
  - Angioedema [Recovered/Resolved]
